FAERS Safety Report 7827846-1 (Version None)
Quarter: 2011Q4

REPORT INFORMATION
  Report Type: 
  Country: None (occurrence: None)
  Receive Date: 20111019
  Receipt Date: 20111019
  Transmission Date: 20120403
  Serious: Yes (Hospitalization)
  Sender: FDA-Public Use
  Company Number: None

PATIENT
  Age: 76 Year
  Sex: Female
  Weight: 67.2 kg

DRUGS (11)
  1. BRM-120 [Suspect]
     Indication: BREAST CANCER METASTATIC
     Dosage: 100 MG 5 DAYS A WEEK
     Dates: start: 20111007
  2. COLACE [Concomitant]
  3. NEXIUM [Concomitant]
  4. LORAZEPAM [Concomitant]
  5. COMPAZINE [Concomitant]
  6. LEVOTHYROXINE SODIUM [Concomitant]
  7. OXYCODONE HCL [Concomitant]
  8. SENNA TABLETS [Concomitant]
  9. LETROZOLE [Suspect]
     Indication: BREAST CANCER METASTATIC
     Dosage: 2.5 MG/DAY
     Dates: start: 20110928
  10. PERCOGESIC [Concomitant]
  11. PROPRANOLOL [Concomitant]

REACTIONS (4)
  - METASTASES TO SPINE [None]
  - METASTASES TO BONE [None]
  - BLADDER DISORDER [None]
  - GASTROINTESTINAL DISORDER [None]
